FAERS Safety Report 4867945-X (Version None)
Quarter: 2005Q4

REPORT INFORMATION
  Report Type: 
  Country: None (occurrence: None)
  Receive Date: 20051227
  Receipt Date: 20051214
  Transmission Date: 20060501
  Serious: Yes (Hospitalization)
  Sender: FDA-Public Use
  Company Number: DSA_2274_2005

PATIENT
  Age: 19 Year
  Sex: Female

DRUGS (2)
  1. VANIQA [Suspect]
     Dosage: DF TID TP
     Route: 064
     Dates: start: 20050301
  2. DIANETTE [Concomitant]

REACTIONS (3)
  - ERYTHEMA [None]
  - MENINGITIS [None]
  - RESPIRATORY TRACT INFECTION [None]
